FAERS Safety Report 7210806-1 (Version None)
Quarter: 2011Q1

REPORT INFORMATION
  Report Type: 
  Country: None (occurrence: None)
  Receive Date: 20110105
  Receipt Date: 20101228
  Transmission Date: 20110831
  Serious: Yes (Death, Other)
  Sender: FDA-Public Use
  Company Number: DE-PFIZER INC-DE-WYE-G05721910

PATIENT
  Age: 65 Year
  Sex: Female
  Weight: 45 kg

DRUGS (15)
  1. RAPAMUNE [Suspect]
     Route: 065
  2. PREDNISOLONE [Concomitant]
     Route: 065
  3. COLECALCIFEROL [Concomitant]
     Route: 065
  4. SIMVASTATIN [Concomitant]
     Route: 065
  5. PHENPROCOUMON [Concomitant]
     Route: 065
  6. FUROSEMIDE [Concomitant]
     Route: 065
  7. GLIMEPIRIDE [Concomitant]
     Route: 065
  8. TACROLIMUS [Concomitant]
     Route: 065
  9. ZYVOX [Suspect]
     Indication: TRANSPLANT ABSCESS
     Dosage: 600 MG, 2X/DAY
     Route: 042
     Dates: start: 20091221, end: 20100114
  10. ZYVOX [Suspect]
     Dosage: 600 MG, 2X/DAY
     Route: 048
     Dates: start: 20100115, end: 20100127
  11. BISOPROLOL [Concomitant]
     Route: 065
  12. LEVOTHYROXINE [Concomitant]
     Route: 065
  13. FOLIC ACID [Concomitant]
     Route: 065
  14. GABAPENTIN [Concomitant]
     Route: 065
  15. PANTOPRAZOLE [Concomitant]
     Route: 065

REACTIONS (9)
  - LACTIC ACIDOSIS [None]
  - TACHYARRHYTHMIA [None]
  - CARDIAC FAILURE [None]
  - RENAL ABSCESS [None]
  - UROSEPSIS [None]
  - MULTI-ORGAN FAILURE [None]
  - MITRAL VALVE INCOMPETENCE [None]
  - RENAL FAILURE [None]
  - PNEUMONITIS [None]
